FAERS Safety Report 10210716 (Version 1)
Quarter: 2014Q2

REPORT INFORMATION
  Report Type: Spontaneous
  Country: FR (occurrence: FR)
  Receive Date: 20140602
  Receipt Date: 20140602
  Transmission Date: 20141212
  Serious: Yes (Other)
  Sender: FDA-Public Use
  Company Number: FR-TEVA-483799ISR

PATIENT
  Age: 60 Year
  Sex: Male

DRUGS (7)
  1. OXALIPLATINE TEVA 5 MG/ML [Suspect]
     Dosage: .0051 DOSAGE FORMS DAILY; FOLFOX PROTOCOL
     Route: 042
     Dates: start: 20131126, end: 20140318
  2. 5 FLUOROURACILE [Concomitant]
     Dosage: FOLFOX PROTOCOL
     Dates: start: 20141126
  3. ELVORINE [Concomitant]
     Dosage: FOLFOX PROTOCOL
  4. POLARAMINE 5 MG/ 1 ML [Concomitant]
     Route: 042
     Dates: start: 20140318, end: 20140318
  5. AZANTAC INJECTABLE 50 MG/2 ML [Concomitant]
     Route: 042
     Dates: start: 20140318, end: 20140318
  6. ONDANSETRON 8 MG [Concomitant]
     Route: 042
     Dates: start: 20140318, end: 20140318
  7. METHYLPREDNISOLONE 40 MG [Concomitant]
     Route: 042
     Dates: start: 20140318, end: 20140318

REACTIONS (8)
  - Rash [Recovered/Resolved]
  - Dyspnoea [Recovered/Resolved]
  - Hypertension [Recovered/Resolved]
  - Erythema [Recovered/Resolved]
  - Dyspnoea [Recovered/Resolved]
  - Tachypnoea [Recovered/Resolved]
  - Haemodynamic instability [Recovered/Resolved]
  - Blood pressure diastolic increased [Recovered/Resolved]
